FAERS Safety Report 12404892 (Version 1)
Quarter: 2016Q2

REPORT INFORMATION
  Report Type: Spontaneous
  Country: GB (occurrence: GB)
  Receive Date: 20160525
  Receipt Date: 20160525
  Transmission Date: 20160815
  Serious: Yes (Other)
  Sender: FDA-Public Use
  Company Number: GB-TEVA-661748ACC

PATIENT
  Age: 66 Year
  Sex: Male
  Weight: 60.32 kg

DRUGS (2)
  1. TEVA UK LANSOPRAZOLE [Suspect]
     Active Substance: LANSOPRAZOLE
     Indication: GASTROOESOPHAGEAL REFLUX PROPHYLAXIS
     Dosage: 30 MILLIGRAM DAILY; IN THE MORNING
     Route: 048
     Dates: start: 20160309, end: 20160409
  2. PREDNISOLONE. [Concomitant]
     Active Substance: PREDNISOLONE
     Indication: TEMPORAL ARTERITIS
     Dosage: 40 MILLIGRAM DAILY; REDUCING BY 5MG STEPS TO 25MG DAILY WHEN LANSOPROZOLE WAS STOPPED.

REACTIONS (2)
  - Scintillating scotoma [Recovered/Resolved]
  - Anxiety [Unknown]

NARRATIVE: CASE EVENT DATE: 201603
